FAERS Safety Report 4877318-1 (Version None)
Quarter: 2006Q1

REPORT INFORMATION
  Report Type: 
  Country: None (occurrence: None)
  Receive Date: 20060106
  Receipt Date: 20051229
  Transmission Date: 20060701
  Serious: Yes (Life-Threatening, Hospitalization)
  Sender: FDA-Public Use
  Company Number: GXKR2005CH02228

PATIENT
  Age: 64 Year
  Sex: Male
  Weight: 110 kg

DRUGS (11)
  1. LISINOPRIL [Suspect]
     Indication: SECONDARY HYPERTENSION
     Dosage: 10 MG, QD, ORAL
     Route: 048
     Dates: start: 20051022, end: 20051022
  2. ENALAPRIL MALEATE (NGX) (ENALAPRIL MALEATE) TABLET [Suspect]
     Indication: SECONDARY HYPERTENSION
     Dosage: 10 MG, BID, ORAL
     Route: 048
     Dates: start: 20051028, end: 20051028
  3. ENALAPRIL MALEATE [Suspect]
     Indication: SECONDARY HYPERTENSION
     Dosage: 10 MG, BID, ORAL
     Route: 048
     Dates: start: 20051023, end: 20051027
  4. CAPTOPRIL [Suspect]
     Indication: SECONDARY HYPERTENSION
     Dosage: 10 MG, BID, ORAL
     Route: 048
     Dates: start: 20051029, end: 20051030
  5. COSAAR (LOSARTAN POTASSIUM) [Suspect]
     Indication: SECONDARY HYPERTENSION
     Dosage: ORAL
     Route: 048
     Dates: start: 20051031, end: 20051101
  6. ASPIRIN [Suspect]
     Dosage: 300 MG, QD,  ORAL
     Route: 048
     Dates: end: 20051101
  7. ATORVASTATIN CALCIUM [Suspect]
     Dosage: 40 MG, QD, ORAL
     Route: 048
     Dates: start: 20051022, end: 20051109
  8. NORVASC [Concomitant]
  9. NEXIUM [Concomitant]
  10. ATROVENT [Concomitant]
  11. PREDNISOLONE [Concomitant]

REACTIONS (2)
  - CARDIOPULMONARY FAILURE [None]
  - LARYNGEAL OEDEMA [None]
